FAERS Safety Report 16767871 (Version 8)
Quarter: 2022Q2

REPORT INFORMATION
  Report Type: Spontaneous
  Country: US (occurrence: US)
  Receive Date: 20190903
  Receipt Date: 20220523
  Transmission Date: 20220720
  Serious: Yes (Other)
  Sender: FDA-Public Use
  Company Number: US-SA-2019SA243553

PATIENT
  Age: 36 Year
  Sex: Male

DRUGS (2)
  1. ALPROLIX [Suspect]
     Active Substance: EFTRENONACOG ALFA
     Indication: Haemorrhage
     Dosage: 7900 U, QD PRN
     Route: 042
  2. ALPROLIX [Suspect]
     Active Substance: EFTRENONACOG ALFA
     Indication: Haemorrhage
     Dosage: 7900 U, QD PRN
     Route: 042

REACTIONS (3)
  - Haemorrhage [Recovered/Resolved]
  - Arthropathy [Unknown]
  - Inflammation [Unknown]

NARRATIVE: CASE EVENT DATE: 20190820
